FAERS Safety Report 4343909-X (Version None)
Quarter: 2004Q2

REPORT INFORMATION
  Report Type: 
  Country: None (occurrence: None)
  Receive Date: 20040421
  Receipt Date: 20040421
  Transmission Date: 20050107
  Serious: Yes (Hospitalization)
  Sender: FDA-Public Use
  Company Number: None

PATIENT
  Age: 52 Year
  Sex: Female
  Weight: 60.5 kg

DRUGS (13)
  1. DIGOXIN [Suspect]
     Dosage: 0.25 MG QD
  2. WARFARIN SODIUM [Concomitant]
  3. AMIODARONE HCL [Concomitant]
  4. ASPIRIN [Concomitant]
  5. LASIX [Concomitant]
  6. POTASSIUM [Concomitant]
  7. LISINOPRIL [Concomitant]
  8. PROTONIX [Concomitant]
  9. METOPROLOL [Concomitant]
  10. DARVOCET [Concomitant]
  11. HYDRELAZINE [Concomitant]
  12. PREDNISONE [Concomitant]
  13. GLYBURIDE [Concomitant]

REACTIONS (6)
  - ABDOMINAL PAIN [None]
  - ASTHENIA [None]
  - DRUG TOXICITY [None]
  - ELECTROCARDIOGRAM ABNORMAL [None]
  - NAUSEA [None]
  - VOMITING [None]
